FAERS Safety Report 10487182 (Version 3)
Quarter: 2014Q4

REPORT INFORMATION
  Report Type: Report from Study
  Country: US (occurrence: US)
  Receive Date: 20141001
  Receipt Date: 20141230
  Transmission Date: 20150528
  Serious: Yes (Hospitalization, Other)
  Sender: FDA-Public Use
  Company Number: US-SA-2013SA101657

PATIENT
  Age: 50 Year
  Sex: Female

DRUGS (12)
  1. AMANTADINE [Concomitant]
     Active Substance: AMANTADINE
  2. VITAMIN D [Concomitant]
     Active Substance: CHOLECALCIFEROL
  3. LOVASTATIN. [Concomitant]
     Active Substance: LOVASTATIN
  4. AMITRIPTYLINE [Concomitant]
     Active Substance: AMITRIPTYLINE
  5. SOLU-MEDROL [Concomitant]
     Active Substance: METHYLPREDNISOLONE SODIUM SUCCINATE
     Dates: start: 20131209
  6. AUBAGIO [Suspect]
     Active Substance: TERIFLUNOMIDE
     Indication: MULTIPLE SCLEROSIS
     Route: 048
  7. TICLOPIDINE [Concomitant]
     Active Substance: TICLOPIDINE
  8. COLACE [Concomitant]
     Active Substance: DOCUSATE SODIUM
  9. AUBAGIO [Suspect]
     Active Substance: TERIFLUNOMIDE
     Indication: MULTIPLE SCLEROSIS
     Route: 048
     Dates: start: 20130917
  10. METOPROLOL [Concomitant]
     Active Substance: METOPROLOL
  11. GLIMEPIRIDE. [Concomitant]
     Active Substance: GLIMEPIRIDE
  12. ALL OTHER THERAPEUTIC PRODUCTS [Concomitant]
     Active Substance: UNSPECIFIED INGREDIENT

REACTIONS (11)
  - Bursitis [Unknown]
  - Limb discomfort [Not Recovered/Not Resolved]
  - Pain [Unknown]
  - Muscle spasms [Unknown]
  - Vision blurred [Unknown]
  - Anxiety [Unknown]
  - Fatigue [Recovering/Resolving]
  - Drug dose omission [Unknown]
  - Acne [Recovering/Resolving]
  - Multiple sclerosis relapse [Unknown]
  - Hospitalisation [Unknown]

NARRATIVE: CASE EVENT DATE: 2013
